FAERS Safety Report 5630966-3 (Version None)
Quarter: 2008Q1

REPORT INFORMATION
  Report Type: 
  Country: None (occurrence: None)
  Receive Date: 20080219
  Receipt Date: 20080207
  Transmission Date: 20080703
  Serious: Yes (Hospitalization)
  Sender: FDA-Public Use
  Company Number: CA-ELI_LILLY_AND_COMPANY-CA200711005843

PATIENT
  Age: 70 Year
  Sex: Female

DRUGS (3)
  1. FORTEO [Suspect]
     Indication: OSTEOPOROSIS
     Dosage: 20 UG, DAILY (1/D)
     Route: 058
     Dates: start: 20070907, end: 20071123
  2. ASPIRIN [Concomitant]
     Dosage: 81 MG, DAILY (1/D)
  3. HYDROCHLOROTHIAZIDE [Concomitant]

REACTIONS (2)
  - COLITIS ULCERATIVE [None]
  - DIARRHOEA [None]
